FAERS Safety Report 19719409 (Version 1)
Quarter: 2021Q3

REPORT INFORMATION
  Report Type: Report from Study
  Country: IN (occurrence: IN)
  Receive Date: 20210818
  Receipt Date: 20210818
  Transmission Date: 20211014
  Serious: Yes (Other)
  Sender: FDA-Public Use
  Company Number: NVSC2021IN182881

PATIENT
  Age: 59 Year
  Sex: Male

DRUGS (3)
  1. SPEXIB [Suspect]
     Active Substance: CERITINIB
     Dosage: 300 MG, QD
     Route: 065
     Dates: start: 20210811
  2. SPEXIB [Suspect]
     Active Substance: CERITINIB
     Dosage: 450 MG, QD
     Route: 065
     Dates: start: 20210113, end: 20210803
  3. SPEXIB [Suspect]
     Active Substance: CERITINIB
     Indication: ANAPLASTIC LYMPHOMA KINASE GENE MUTATION
     Dosage: 450 MG, QD
     Route: 065
     Dates: start: 20190918, end: 20201203

REACTIONS (1)
  - Hepatic infection [Recovered/Resolved]
